FAERS Safety Report 5955232-8 (Version None)
Quarter: 2008Q4

REPORT INFORMATION
  Report Type: 
  Country: None (occurrence: None)
  Receive Date: 20081117
  Receipt Date: 20081107
  Transmission Date: 20090506
  Serious: Yes (Other)
  Sender: FDA-Public Use
  Company Number: US-B.I. PHARMACEUTICALS,INC./RIDGEFIELD-2008-BP-16900BP

PATIENT
  Age: 16 Year
  Sex: Female
  Weight: 65 kg

DRUGS (6)
  1. MOBIC [Suspect]
     Indication: JUVENILE ARTHRITIS
     Dosage: 15MG
     Route: 048
     Dates: start: 20061201
  2. OMEPRAZOLE [Suspect]
     Indication: ABDOMINAL PAIN
     Dosage: 20MG
     Route: 048
     Dates: start: 20071201
  3. OMEPRAZOLE [Suspect]
     Indication: LACTOSE INTOLERANCE
  4. MULTI-VITAMIN [Concomitant]
  5. CALCIUM [Concomitant]
  6. METHOTREXATE [Concomitant]
     Dates: start: 20040701, end: 20080701

REACTIONS (1)
  - DYSPLASTIC NAEVUS SYNDROME [None]
